FAERS Safety Report 8202849-6 (Version None)
Quarter: 2012Q1

REPORT INFORMATION
  Report Type: 
  Country: None (occurrence: None)
  Receive Date: 20120312
  Receipt Date: 20120312
  Transmission Date: 20120608
  Serious: Yes (Disabling)
  Sender: FDA-Public Use
  Company Number: None

PATIENT
  Age: 31 Year
  Sex: Male
  Weight: 60.327 kg

DRUGS (1)
  1. COPAXONE [Suspect]
     Dates: start: 20110616, end: 20111221

REACTIONS (1)
  - SKIN DISCOLOURATION [None]
